FAERS Safety Report 5655669-0 (Version None)
Quarter: 2008Q1

REPORT INFORMATION
  Report Type: 
  Country: None (occurrence: None)
  Receive Date: 20080307
  Receipt Date: 20080229
  Transmission Date: 20080703
  Serious: No
  Sender: FDA-Public Use
  Company Number: US-BAXTER-2008BH000202

PATIENT
  Age: 58 Year
  Sex: Female
  Weight: 66 kg

DRUGS (27)
  1. HEPARIN SODIUM [Suspect]
     Indication: THROMBOSIS PROPHYLAXIS
     Route: 042
     Dates: start: 20071228, end: 20080107
  2. HEPARIN SODIUM [Suspect]
     Route: 042
     Dates: start: 20071228, end: 20080107
  3. HEPARIN SODIUM [Suspect]
     Route: 042
     Dates: start: 20071228, end: 20080107
  4. HEPARIN SODIUM [Suspect]
     Route: 042
     Dates: start: 20071228, end: 20080107
  5. HEPARIN SODIUM [Suspect]
     Route: 042
     Dates: start: 20071228, end: 20080107
  6. HEPARIN SODIUM [Suspect]
     Route: 042
     Dates: start: 20071228, end: 20080107
  7. HEPARIN SODIUM [Suspect]
     Route: 042
     Dates: start: 20071228, end: 20080107
  8. HEPARIN SODIUM [Suspect]
     Route: 042
     Dates: start: 20071228, end: 20080107
  9. HEPARIN SODIUM [Suspect]
     Route: 042
     Dates: start: 20071228, end: 20080107
  10. HEPARIN SODIUM [Suspect]
     Route: 042
     Dates: start: 20071228, end: 20080107
  11. HEPARIN SODIUM [Suspect]
     Route: 042
     Dates: start: 20071228, end: 20080107
  12. HEPARIN SODIUM [Suspect]
     Route: 042
     Dates: start: 20071228, end: 20080107
  13. HEPARIN SODIUM [Suspect]
     Route: 042
     Dates: start: 20071228, end: 20080107
  14. HEPARIN SODIUM [Suspect]
     Route: 042
     Dates: start: 20071228, end: 20080107
  15. HEPARIN SODIUM [Suspect]
     Route: 042
     Dates: start: 20071228, end: 20080107
  16. HEPARIN SODIUM [Suspect]
     Route: 042
     Dates: start: 20071228, end: 20080107
  17. SODIUM CHLORIDE INJ [Concomitant]
     Indication: DRUG USE FOR UNKNOWN INDICATION
     Dosage: DOSE UNIT:UNKNOWN
     Route: 010
     Dates: start: 20071201, end: 20071201
  18. CALCIJEX [Concomitant]
     Route: 042
  19. COREG [Concomitant]
     Indication: DRUG USE FOR UNKNOWN INDICATION
     Route: 065
  20. LIPITOR [Concomitant]
     Indication: DRUG USE FOR UNKNOWN INDICATION
     Route: 065
  21. NEXIUM                                  /UNK/ [Concomitant]
     Indication: DRUG USE FOR UNKNOWN INDICATION
     Route: 065
  22. VICODIN [Concomitant]
     Indication: DRUG USE FOR UNKNOWN INDICATION
     Dosage: DOSE UNIT:UNKNOWN
     Route: 065
  23. PROMETHAZINE [Concomitant]
     Indication: DRUG USE FOR UNKNOWN INDICATION
     Dosage: DOSE UNIT:UNKNOWN
     Route: 065
  24. COLACE [Concomitant]
     Indication: DRUG USE FOR UNKNOWN INDICATION
     Route: 065
  25. MAGNESIUM GLUCONATE [Concomitant]
     Indication: DRUG USE FOR UNKNOWN INDICATION
     Dosage: DOSE UNIT:UNKNOWN
     Route: 065
  26. PREMARIN [Concomitant]
     Indication: DRUG USE FOR UNKNOWN INDICATION
     Route: 065
  27. KADIAN [Concomitant]
     Indication: DRUG USE FOR UNKNOWN INDICATION
     Dosage: DOSE UNIT:UNKNOWN
     Route: 065

REACTIONS (10)
  - ABDOMINAL PAIN UPPER [None]
  - COUGH [None]
  - DRY SKIN [None]
  - DYSPNOEA [None]
  - FLUSHING [None]
  - OCULAR HYPERAEMIA [None]
  - OEDEMA MOUTH [None]
  - PARAESTHESIA ORAL [None]
  - PHARYNGEAL OEDEMA [None]
  - SKIN TIGHTNESS [None]
